FAERS Safety Report 16105092 (Version 1)
Quarter: 2019Q2

REPORT INFORMATION
  Report Type: Spontaneous
  Country: US (occurrence: US)
  Receive Date: 20190321
  Receipt Date: 20190321
  Transmission Date: 20190711
  Serious: Yes (Hospitalization)
  Sender: FDA-Public Use
  Company Number: None

PATIENT
  Age: 71 Year
  Sex: Female

DRUGS (6)
  1. TYMLOS [Suspect]
     Active Substance: ABALOPARATIDE
     Indication: OSTEOPOROSIS
     Route: 058
  2. ASPIRING 81 MG [Concomitant]
  3. METOCLORPTAMIDE 10 MG [Concomitant]
  4. PRASUGREL 10 MG [Concomitant]
     Active Substance: PRASUGREL
  5. LORTAB 7.5/325 MG [Concomitant]
  6. ZOLPIDEM 5 MG [Concomitant]
     Active Substance: ZOLPIDEM\ZOLPIDEM TARTRATE

REACTIONS (1)
  - Myocardial infarction [None]

NARRATIVE: CASE EVENT DATE: 20190320
